FAERS Safety Report 10412388 (Version 2)
Quarter: 2019Q4

REPORT INFORMATION
  Report Type: Spontaneous
  Country: CA (occurrence: CA)
  Receive Date: 20140827
  Receipt Date: 20191014
  Transmission Date: 20200122
  Serious: Yes (Hospitalization, Other)
  Sender: FDA-Public Use
  Company Number: CA-PFIZER INC-2014236350

PATIENT
  Age: 51 Year
  Sex: Male

DRUGS (2)
  1. VERAPAMIL HCL [Suspect]
     Active Substance: VERAPAMIL HYDROCHLORIDE
     Indication: HYPERTENSION
     Dosage: 19.2 G, SINGLE
     Route: 048
  2. DIPHENHYDRAMINE. [Suspect]
     Active Substance: DIPHENHYDRAMINE
     Dosage: 200 MG, SINGLE
     Route: 048

REACTIONS (10)
  - Cardiogenic shock [Recovered/Resolved]
  - Compartment syndrome [Unknown]
  - Bradycardia [Recovered/Resolved]
  - Cardiac arrest [Recovered/Resolved]
  - Lactic acidosis [Unknown]
  - Hyperkalaemia [Recovering/Resolving]
  - Overdose [Unknown]
  - Coma [Unknown]
  - Hypotension [Unknown]
  - Rhabdomyolysis [Unknown]
